FAERS Safety Report 7591979-8 (Version None)
Quarter: 2011Q3

REPORT INFORMATION
  Report Type: 
  Country: None (occurrence: None)
  Receive Date: 20110706
  Receipt Date: 20110627
  Transmission Date: 20111222
  Serious: Yes (Hospitalization)
  Sender: FDA-Public Use
  Company Number: US-US-EMD SERONO, INC.-7066234

PATIENT
  Sex: Male

DRUGS (5)
  1. REBIF [Suspect]
     Route: 058
  2. UNSPECIFIED MEDICATION [Concomitant]
  3. KEPRA [Concomitant]
     Indication: EPILEPSY
  4. CLONAZEPAM [Concomitant]
     Indication: ANXIETY
  5. REBIF [Suspect]
     Indication: MULTIPLE SCLEROSIS
     Route: 058
     Dates: start: 20110612

REACTIONS (1)
  - MULTIPLE SCLEROSIS RELAPSE [None]
